FAERS Safety Report 14160343 (Version 1)
Quarter: 2017Q4

REPORT INFORMATION
  Report Type: Report from Study
  Country: None (occurrence: CA)
  Receive Date: 20171104
  Receipt Date: 20171104
  Transmission Date: 20180321
  Serious: Yes (Hospitalization, Other)
  Sender: FDA-Public Use
  Company Number: CA-ABBVIE-17K-028-2147337-00

PATIENT
  Age: 52 Year
  Sex: Female

DRUGS (2)
  1. PREDNISONE. [Suspect]
     Active Substance: PREDNISONE
     Indication: PRODUCT USED FOR UNKNOWN INDICATION
     Route: 065
  2. HUMIRA [Suspect]
     Active Substance: ADALIMUMAB
     Indication: RHEUMATOID ARTHRITIS
     Route: 058
     Dates: start: 20100820, end: 20171006

REACTIONS (8)
  - Bladder prolapse [Recovered/Resolved]
  - Bladder prolapse [Recovered/Resolved]
  - Urinary tract infection [Not Recovered/Not Resolved]
  - Tooth extraction [Unknown]
  - Nephrolithiasis [Not Recovered/Not Resolved]
  - Tooth infection [Recovered/Resolved]
  - Tooth disorder [Not Recovered/Not Resolved]
  - Tooth fracture [Unknown]

NARRATIVE: CASE EVENT DATE: 2014
